APPROVED DRUG PRODUCT: HYDROXYCHLOROQUINE SULFATE
Active Ingredient: HYDROXYCHLOROQUINE SULFATE
Strength: 200MG
Dosage Form/Route: TABLET;ORAL
Application: A201691 | Product #001 | TE Code: AB
Applicant: ALKALOIDA CHEMICAL CO ZRT
Approved: May 8, 2018 | RLD: No | RS: No | Type: RX